FAERS Safety Report 20746194 (Version 3)
Quarter: 2022Q2

REPORT INFORMATION
  Report Type: Spontaneous
  Country: IN (occurrence: IN)
  Receive Date: 20220425
  Receipt Date: 20220621
  Transmission Date: 20220721
  Serious: No
  Sender: FDA-Public Use
  Company Number: IN-LUPIN LIMITED-2022-05825

PATIENT
  Age: 61 Year
  Sex: Male

DRUGS (2)
  1. ALBUTEROL SULFATE [Suspect]
     Active Substance: ALBUTEROL SULFATE
     Indication: Dyspnoea
     Dosage: UNK UNK, PRN
  2. ALBUTEROL SULFATE [Suspect]
     Active Substance: ALBUTEROL SULFATE
     Dosage: UNK, PRN
     Route: 065

REACTIONS (6)
  - Poor quality product administered [Unknown]
  - Incorrect dose administered [Unknown]
  - Product use complaint [Unknown]
  - Product physical issue [Unknown]
  - Product colour issue [Unknown]
  - No adverse event [Unknown]
